FAERS Safety Report 4512881-1 (Version None)
Quarter: 2004Q4

REPORT INFORMATION
  Report Type: 
  Country: None (occurrence: None)
  Receive Date: 20041130
  Receipt Date: 20041119
  Transmission Date: 20050328
  Serious: Yes (Hospitalization)
  Sender: FDA-Public Use
  Company Number: FR-BRISTOL-MYERS SQUIBB COMPANY-12772943

PATIENT
  Age: 40 Year
  Sex: Male

DRUGS (1)
  1. VASTEN TABS 40 MG [Suspect]
     Indication: HYPERCHOLESTEROLAEMIA
     Route: 048
     Dates: start: 20031015, end: 20041015

REACTIONS (1)
  - TENDON RUPTURE [None]
